FAERS Safety Report 5201702-X (Version None)
Quarter: 2007Q1

REPORT INFORMATION
  Report Type: 
  Country: None (occurrence: None)
  Receive Date: 20070104
  Receipt Date: 20061228
  Transmission Date: 20070707
  Serious: Yes (Hospitalization)
  Sender: FDA-Public Use
  Company Number: 234395

PATIENT
  Age: 84 Year
  Sex: Male

DRUGS (2)
  1. ACTIVACIN(ALTEPLASE) PWDR + SOLVENT,INFUSION SOLN [Suspect]
     Indication: CEREBRAL INFARCTION
     Dosage: 36 MG, SINGLE, INTRAVENOUS
     Route: 042
     Dates: start: 20060809, end: 20060809
  2. RADICUT (EDARAVONE) [Concomitant]

REACTIONS (1)
  - CHOLECYSTITIS ACUTE [None]
